FAERS Safety Report 8000692-4 (Version None)
Quarter: 2011Q4

REPORT INFORMATION
  Report Type: 
  Country: None (occurrence: None)
  Receive Date: 20111219
  Receipt Date: 20111209
  Transmission Date: 20120403
  Serious: Yes (Hospitalization)
  Sender: FDA-Public Use
  Company Number: IPC201112-003258

PATIENT
  Age: 32 Year
  Sex: Female

DRUGS (2)
  1. DIAZEPAM [Suspect]
     Dosage: 2 MG/KG, BOLUS
     Route: 040
  2. HYDROXYCHLOROQUINE SULFATE [Suspect]
     Dosage: 18 GRAMS

REACTIONS (8)
  - ELECTROCARDIOGRAM QT PROLONGED [None]
  - INTENTIONAL OVERDOSE [None]
  - ELECTROLYTE IMBALANCE [None]
  - SUICIDE ATTEMPT [None]
  - BLOOD POTASSIUM DECREASED [None]
  - ELECTROCARDIOGRAM CHANGE [None]
  - DRUG INTERACTION [None]
  - HYPOTENSION [None]
